FAERS Safety Report 24991618 (Version 1)
Quarter: 2025Q1

REPORT INFORMATION
  Report Type: Spontaneous
  Country: US (occurrence: US)
  Receive Date: 20250220
  Receipt Date: 20250220
  Transmission Date: 20250408
  Serious: No
  Sender: CALLIDITAS THERAPEUTICS AB
  Company Number: US-Calliditas-2025CAL00376

PATIENT
  Age: 51 Year
  Sex: Female

DRUGS (1)
  1. TARPEYO [Suspect]
     Active Substance: BUDESONIDE
     Indication: IgA nephropathy
     Route: 048
     Dates: start: 20240426

REACTIONS (4)
  - Nasopharyngitis [Unknown]
  - Nausea [Unknown]
  - Decreased appetite [Unknown]
  - Chromaturia [Unknown]
